FAERS Safety Report 17107526 (Version 1)
Quarter: 2019Q4

REPORT INFORMATION
  Report Type: Spontaneous
  Country: FR (occurrence: FR)
  Receive Date: 20191203
  Receipt Date: 20191203
  Transmission Date: 20200122
  Serious: Yes (Other)
  Sender: FDA-Public Use
  Company Number: FR-JNJFOC-20191145653

PATIENT
  Age: 79 Year
  Sex: Female

DRUGS (5)
  1. EBIXA [Concomitant]
     Active Substance: MEMANTINE HYDROCHLORIDE
     Dosage: 10 MG, UNK
     Dates: start: 20170125, end: 20170419
  2. RIVAROXABAN [Suspect]
     Active Substance: RIVAROXABAN
     Indication: ATRIAL FIBRILLATION
     Dosage: 10 MG, QD
     Route: 048
     Dates: start: 20170125, end: 20170419
  3. KERLONE [Concomitant]
     Active Substance: BETAXOLOL HYDROCHLORIDE
     Indication: PROPHYLAXIS
     Dosage: 20 MG, QD
     Route: 048
     Dates: start: 20170125, end: 20170419
  4. RIVAROXABAN [Suspect]
     Active Substance: RIVAROXABAN
     Indication: PROPHYLAXIS
  5. SERESTA [Concomitant]
     Active Substance: OXAZEPAM
     Indication: PROPHYLAXIS
     Dosage: 10 MG, QD
     Route: 048
     Dates: start: 20170125, end: 20170419

REACTIONS (2)
  - Off label use [Unknown]
  - Cerebrovascular accident [Unknown]
